FAERS Safety Report 5241280-2 (Version None)
Quarter: 2007Q1

REPORT INFORMATION
  Report Type: 
  Country: None (occurrence: None)
  Receive Date: 20070215
  Receipt Date: 20070215
  Transmission Date: 20070707
  Serious: No
  Sender: FDA-Public Use
  Company Number: None

PATIENT
  Age: 79 Year
  Sex: Female

DRUGS (4)
  1. XELODA [Suspect]
     Indication: BREAST NEOPLASM
     Dosage: 2 IN AM 3 IN PM; 2 IN AM 3 IN PM; PO
     Route: 048
     Dates: start: 20060928, end: 20070211
  2. SYNTHROID [Concomitant]
  3. HYDROCHLOROTHIAZIDE [Concomitant]
  4. ASPIRIN [Concomitant]

REACTIONS (2)
  - ABDOMINAL DISTENSION [None]
  - GASTRIC DISORDER [None]
